FAERS Safety Report 7159791-1 (Version None)
Quarter: 2010Q4

REPORT INFORMATION
  Report Type: 
  Country: None (occurrence: None)
  Receive Date: 20101214
  Receipt Date: 20101004
  Transmission Date: 20110411
  Serious: No
  Sender: FDA-Public Use
  Company Number: US-ASTRAZENECA-2010SE46599

PATIENT
  Age: 66 Year
  Sex: Male

DRUGS (2)
  1. CRESTOR [Suspect]
     Indication: HYPERCHOLESTEROLAEMIA
     Route: 048
     Dates: start: 20090101, end: 20100801
  2. CRESTOR [Suspect]
     Route: 048
     Dates: start: 20100925, end: 20100930

REACTIONS (6)
  - ARTHROPATHY [None]
  - DEPRESSION [None]
  - INFLUENZA LIKE ILLNESS [None]
  - MALAISE [None]
  - MUSCULOSKELETAL DISCOMFORT [None]
  - NAUSEA [None]
